FAERS Safety Report 17564819 (Version 1)
Quarter: 2020Q1

REPORT INFORMATION
  Report Type: Spontaneous
  Country: US (occurrence: US)
  Receive Date: 20200320
  Receipt Date: 20200320
  Transmission Date: 20200409
  Serious: Yes (Other)
  Sender: FDA-Public Use
  Company Number: US-SA-2020SA066780

PATIENT
  Age: 63 Year
  Sex: Female
  Weight: 55 kg

DRUGS (9)
  1. TAXOTERE [Suspect]
     Active Substance: DOCETAXEL
     Indication: BREAST CANCER FEMALE
     Dosage: 116 MG, Q3W
     Route: 042
     Dates: start: 20160413, end: 20160707
  2. TAXOTERE [Suspect]
     Active Substance: DOCETAXEL
     Dosage: 116 MG, Q3W
     Route: 042
     Dates: start: 20160707, end: 20160707
  3. NEOSAR [Concomitant]
     Active Substance: CYCLOPHOSPHAMIDE
  4. LETROZOLE. [Concomitant]
     Active Substance: LETROZOLE
     Dosage: UNK
  5. PERTUZUMAB. [Concomitant]
     Active Substance: PERTUZUMAB
     Indication: BREAST CANCER FEMALE
  6. MULTIVITAMINUM [Concomitant]
     Active Substance: VITAMINS
     Dosage: UNK
  7. TRASTUZUMAB. [Concomitant]
     Active Substance: TRASTUZUMAB
     Indication: BREAST CANCER FEMALE
     Dosage: UNK
  8. PROLIA [Concomitant]
     Active Substance: DENOSUMAB
  9. VITAFUSION WOMEN^S [Concomitant]
     Active Substance: VITAMINS
     Dosage: UNK

REACTIONS (2)
  - Alopecia [Recovering/Resolving]
  - Psychological trauma [Unknown]

NARRATIVE: CASE EVENT DATE: 20150401
